FAERS Safety Report 8049955 (Version 4)
Quarter: 2012Q4

REPORT INFORMATION
  Report Type: 
  Country: US (occurrence: US)
  Receive Date: 20110722
  Receipt Date: 20120919
  Transmission Date: 20130627
  Serious: Yes (Hospitalization)
  Sender: FDA-Public Use
  Company Number: US-US-EMD SERONO, INC.-7071186

PATIENT
  Age: 67 Year
  Sex: Male

DRUGS (11)
  1. REBIF [Suspect]
     Indication: MULTIPLE SCLEROSIS
     Route: 058
     Dates: start: 20040915
  2. LORAZEPAM [Concomitant]
  3. CYCLOBENZAPINE [Concomitant]
  4. LIPITOR [Concomitant]
  5. BACLOFEN [Concomitant]
  6. ABILIFY [Concomitant]
  7. LEXAPRO [Concomitant]
  8. SEROQUEL [Concomitant]
  9. FLOMAX [Concomitant]
  10. PREVACID [Concomitant]
  11. IRON SUPPLEMENT [Concomitant]

REACTIONS (5)
  - Pneumonia [Recovered/Resolved]
  - Urinary tract infection [Recovered/Resolved]
  - Multiple sclerosis relapse [Recovered/Resolved]
  - Blood sodium decreased [Recovering/Resolving]
  - Dehydration [Unknown]
